FAERS Safety Report 13098165 (Version 1)
Quarter: 2017Q1

REPORT INFORMATION
  Report Type: Not Available
  Country: US (occurrence: US)
  Receive Date: 20170109
  Receipt Date: 20170109
  Transmission Date: 20170428
  Serious: No
  Sender: FDA-Public Use
  Company Number: US-ANIPHARMA-2016-US-000068

PATIENT
  Age: 73 Year
  Sex: Male
  Weight: 104.33 kg

DRUGS (1)
  1. REGLAN [Suspect]
     Active Substance: METOCLOPRAMIDE HYDROCHLORIDE
     Dosage: 4 TABS DAILY
     Route: 048
     Dates: start: 201504

REACTIONS (1)
  - Dyspnoea [Recovered/Resolved]
